FAERS Safety Report 10224767 (Version 4)
Quarter: 2014Q4

REPORT INFORMATION
  Report Type: Spontaneous
  Country: US (occurrence: US)
  Receive Date: 20140609
  Receipt Date: 20141107
  Transmission Date: 20150528
  Serious: Yes (Hospitalization, Other)
  Sender: FDA-Public Use
  Company Number: US-INCYTE CORPORATION-2014IN001534

PATIENT
  Age: 86 Year
  Sex: Female
  Weight: 60.3 kg

DRUGS (8)
  1. LOPRESSOR [Concomitant]
     Active Substance: METOPROLOL TARTRATE
  2. JAKAFI [Suspect]
     Active Substance: RUXOLITINIB
     Indication: MYELOFIBROSIS
     Dosage: 15 MG AM AND 10 MG PM
     Route: 048
     Dates: start: 20121018, end: 20140731
  3. METOPROLOL [Concomitant]
     Active Substance: METOPROLOL
  4. PROTONIX [Concomitant]
     Active Substance: PANTOPRAZOLE SODIUM
  5. METHYLPHENIDATE [Concomitant]
     Active Substance: METHYLPHENIDATE
  6. CELEXA [Concomitant]
     Active Substance: CITALOPRAM HYDROBROMIDE
  7. JAKAFI [Suspect]
     Active Substance: RUXOLITINIB
     Dosage: UNK
  8. LOSARTAN [Concomitant]
     Active Substance: LOSARTAN

REACTIONS (2)
  - Malignant melanoma [Recovered/Resolved]
  - Melanoma recurrent [Unknown]

NARRATIVE: CASE EVENT DATE: 20140423
